FAERS Safety Report 23832508 (Version 1)
Quarter: 2024Q2

REPORT INFORMATION
  Report Type: Spontaneous
  Country: US (occurrence: US)
  Receive Date: 20240508
  Receipt Date: 20240508
  Transmission Date: 20240716
  Serious: No
  Sender: FDA-Public Use
  Company Number: US-SA-SAC20240430000109

PATIENT
  Age: 55 Year
  Sex: Female
  Weight: 75.74 kg

DRUGS (1)
  1. DUPIXENT [Suspect]
     Active Substance: DUPILUMAB
     Indication: Dermatitis atopic
     Dosage: 300 MG, QOW
     Route: 058
     Dates: start: 202312

REACTIONS (6)
  - Skin haemorrhage [Unknown]
  - Skin weeping [Unknown]
  - Dry skin [Unknown]
  - Skin fissures [Unknown]
  - Scab [Unknown]
  - Pruritus [Unknown]
